FAERS Safety Report 23786595 (Version 1)
Quarter: 2024Q2

REPORT INFORMATION
  Report Type: Report from Study
  Country: IT (occurrence: IT)
  Receive Date: 20240426
  Receipt Date: 20240426
  Transmission Date: 20240716
  Serious: Yes (Other)
  Sender: FDA-Public Use
  Company Number: None

PATIENT
  Age: 70 Year
  Sex: Male

DRUGS (2)
  1. CARBOPLATIN [Suspect]
     Active Substance: CARBOPLATIN
     Indication: Undifferentiated nasopharyngeal carcinoma
     Dosage: CARBOPLATINO
     Route: 042
     Dates: start: 20240226, end: 20240226
  2. GEMCITABINE [Suspect]
     Active Substance: GEMCITABINE
     Indication: Nasopharyngeal cancer
     Dosage: GEMCITABINA, ON DAY 04/03 PRACTICE DAY 8 OF THE CYCLE WITH ADMINISTRATION OF GEMCITABINE ALONE
     Route: 042
     Dates: start: 20240226, end: 20240304

REACTIONS (3)
  - Thrombocytopenia [Not Recovered/Not Resolved]
  - Off label use [Not Recovered/Not Resolved]
  - Anaemia [Not Recovered/Not Resolved]

NARRATIVE: CASE EVENT DATE: 20240226
